FAERS Safety Report 10180220 (Version 2)
Quarter: 2014Q3

REPORT INFORMATION
  Report Type: Spontaneous
  Country: AU (occurrence: None)
  Receive Date: 20140515
  Receipt Date: 20140722
  Transmission Date: 20150326
  Serious: Yes (Life-Threatening, Hospitalization, Other)
  Sender: FDA-Public Use
  Company Number: AUR-APL-2014-05601

PATIENT
  Age: 1 Day
  Sex: Female
  Weight: 3.35 kg

DRUGS (3)
  1. QUETIAPINE [Suspect]
     Active Substance: QUETIAPINE
     Indication: PRODUCT USED FOR UNKNOWN INDICATION
     Dosage: (50 MG, 1 D), TRANSPLACENTAL?
     Route: 064
  2. MAXOLON [Concomitant]
     Active Substance: METOCLOPRAMIDE HYDROCHLORIDE
  3. SERTRALINE [Suspect]
     Active Substance: SERTRALINE HYDROCHLORIDE
     Indication: PRODUCT USED FOR UNKNOWN INDICATION
     Dosage: TRANSPLACENTAL ?
     Route: 064

REACTIONS (5)
  - Foetal distress syndrome [None]
  - Caesarean section [None]
  - Foetal exposure during pregnancy [None]
  - Maternal drugs affecting foetus [None]
  - Tachycardia [None]

NARRATIVE: CASE EVENT DATE: 20120531
